FAERS Safety Report 23000201 (Version 3)
Quarter: 2024Q2

REPORT INFORMATION
  Report Type: Report from Study
  Country: US (occurrence: US)
  Receive Date: 20230928
  Receipt Date: 20240501
  Transmission Date: 20240717
  Serious: Yes (Hospitalization)
  Sender: FDA-Public Use
  Company Number: US-AMX-005370

PATIENT
  Age: 72 Year
  Sex: Male

DRUGS (1)
  1. RELYVRIO [Suspect]
     Active Substance: SODIUM PHENYLBUTYRATE\TAURURSODIOL
     Indication: Amyotrophic lateral sclerosis
     Dosage: 1 SACHET ONCE DAILY FOR 3 WEEKS, THEN 1 SACHET TWICE DAILY
     Route: 048

REACTIONS (5)
  - Thrombosis [Unknown]
  - Hospitalisation [Unknown]
  - Fatigue [Unknown]
  - Anxiety [Unknown]
  - Increased need for sleep [Unknown]
